FAERS Safety Report 15890220 (Version 3)
Quarter: 2019Q1

REPORT INFORMATION
  Report Type: Report from Study
  Country: None (occurrence: RU)
  Receive Date: 20190130
  Receipt Date: 20190215
  Transmission Date: 20190417
  Serious: Yes (Death, Life-Threatening, Hospitalization)
  Sender: FDA-Public Use
  Company Number: RU-ABBVIE-19P-251-2634942-00

PATIENT
  Age: 69 Year
  Sex: Male
  Weight: 67 kg

DRUGS (14)
  1. NORMAL SALINE [Concomitant]
     Active Substance: SODIUM CHLORIDE
     Indication: PROPHYLAXIS
     Route: 042
     Dates: start: 20180412, end: 20180418
  2. VENETOCLAX. [Suspect]
     Active Substance: VENETOCLAX
     Indication: ACUTE MYELOID LEUKAEMIA
     Route: 048
     Dates: start: 20180412, end: 20180412
  3. VENETOCLAX. [Suspect]
     Active Substance: VENETOCLAX
     Route: 048
     Dates: start: 20180413, end: 20180413
  4. VENETOCLAX. [Suspect]
     Active Substance: VENETOCLAX
     Route: 048
     Dates: start: 20180414, end: 20180414
  5. CYTARABINE. [Suspect]
     Active Substance: CYTARABINE
     Indication: ACUTE MYELOID LEUKAEMIA
     Dosage: DAYS 1-10 OF A 28-DAY CYCLE
     Route: 058
     Dates: start: 20180412, end: 20190119
  6. ETHAMSYLATE [Concomitant]
     Active Substance: ETHAMSYLATE
     Indication: THROMBOCYTOPENIA
     Route: 048
     Dates: start: 20180427
  7. PANTOPRAZOLE [Concomitant]
     Active Substance: PANTOPRAZOLE
     Indication: GASTRITIS EROSIVE
     Route: 048
     Dates: start: 20181221
  8. ALLOPURINOL. [Concomitant]
     Active Substance: ALLOPURINOL
     Indication: PROPHYLAXIS
     Route: 048
     Dates: start: 20180412, end: 20180417
  9. OMEPRAZOL [Concomitant]
     Active Substance: OMEPRAZOLE
     Indication: GASTRITIS EROSIVE
     Route: 040
     Dates: start: 20181212, end: 20181220
  10. ACID AMINOCAPRONICUM [Concomitant]
     Indication: GASTRITIS EROSIVE
     Route: 040
     Dates: start: 20181212, end: 20181220
  11. VENETOCLAX. [Suspect]
     Active Substance: VENETOCLAX
     Route: 048
     Dates: start: 20180415, end: 20190119
  12. ETHAMSYLATE [Concomitant]
     Active Substance: ETHAMSYLATE
     Indication: GASTRITIS EROSIVE
     Route: 048
     Dates: start: 20181203, end: 20181206
  13. ACID AMINOCAPRONICUM [Concomitant]
     Indication: GASTROINTESTINAL HAEMORRHAGE
  14. FUROSEMIDE. [Concomitant]
     Active Substance: FUROSEMIDE
     Indication: PROPHYLAXIS
     Route: 042
     Dates: start: 20180412, end: 20180416

REACTIONS (1)
  - Gastritis erosive [Fatal]

NARRATIVE: CASE EVENT DATE: 20190120
